FAERS Safety Report 6582794-2 (Version None)
Quarter: 2010Q1

REPORT INFORMATION
  Report Type: 
  Country: None (occurrence: None)
  Receive Date: 20100216
  Receipt Date: 20100203
  Transmission Date: 20100710
  Serious: Yes (Death, Hospitalization)
  Sender: FDA-Public Use
  Company Number: JP-PFIZER INC-2010008809

PATIENT
  Age: 74 Year
  Sex: Male
  Weight: 58.1 kg

DRUGS (5)
  1. SUNITINIB MALATE [Suspect]
     Indication: METASTATIC RENAL CELL CARCINOMA
     Dosage: 37.5 MG, 1X/DAY
     Route: 048
     Dates: start: 20091019, end: 20100111
  2. BERIZYM [Concomitant]
     Route: 048
  3. MAGNESIUM OXIDE [Concomitant]
     Route: 048
  4. MIGLITOL [Concomitant]
     Route: 048
  5. MEBRON [Concomitant]
     Route: 048

REACTIONS (3)
  - DISEASE PROGRESSION [None]
  - METASTATIC RENAL CELL CARCINOMA [None]
  - PLATELET COUNT DECREASED [None]
